FAERS Safety Report 5745217-9 (Version None)
Quarter: 2008Q2

REPORT INFORMATION
  Report Type: 
  Country: None (occurrence: None)
  Receive Date: 20080521
  Receipt Date: 20080515
  Transmission Date: 20081010
  Serious: Yes (Death)
  Sender: FDA-Public Use
  Company Number: A0728856A

PATIENT
  Age: 90 Year
  Sex: Female
  Weight: 46 kg

DRUGS (3)
  1. SERETIDE [Suspect]
     Indication: BRONCHITIS
     Route: 055
     Dates: start: 20060101, end: 20080423
  2. COMBIVENT [Concomitant]
     Dates: start: 19980101, end: 20080423
  3. PLASIL [Concomitant]
     Dates: start: 19980101, end: 20080423

REACTIONS (1)
  - DEATH [None]
